FAERS Safety Report 5822460-1 (Version None)
Quarter: 2008Q3

REPORT INFORMATION
  Report Type: 
  Country: None (occurrence: None)
  Receive Date: 20080725
  Receipt Date: 20080220
  Transmission Date: 20090109
  Serious: No
  Sender: FDA-Public Use
  Company Number: US-AMGEN-KDL266418

PATIENT
  Sex: Male

DRUGS (6)
  1. EPOGEN [Suspect]
     Indication: RENAL FAILURE CHRONIC
     Route: 042
  2. CLONIDINE [Concomitant]
  3. COREG [Concomitant]
  4. HYDRALAZINE HCL [Concomitant]
  5. PHOSLO [Concomitant]
  6. UNSPECIFIED MEDICATION [Concomitant]

REACTIONS (1)
  - ANAEMIA [None]
